FAERS Safety Report 6913624-4 (Version None)
Quarter: 2010Q3

REPORT INFORMATION
  Report Type: 
  Country: None (occurrence: None)
  Receive Date: 20100809
  Receipt Date: 20100729
  Transmission Date: 20110219
  Serious: Yes (Other)
  Sender: FDA-Public Use
  Company Number: IE-JNJFOC-20100302618

PATIENT
  Sex: Female

DRUGS (4)
  1. CAELYX [Suspect]
     Indication: OVARIAN CANCER
     Dosage: CYCLE 2
     Route: 050
  2. CAELYX [Suspect]
     Dosage: CYCLE 3
     Route: 050
  3. CAELYX [Suspect]
     Dosage: CYCLE 1
     Route: 050
  4. ELTROXIN [Concomitant]
     Indication: HYPOTHYROIDISM
     Dosage: 10 YEARS
     Route: 065

REACTIONS (3)
  - CHOKING [None]
  - DYSPNOEA [None]
  - PALPITATIONS [None]
